FAERS Safety Report 7893093-0 (Version None)
Quarter: 2011Q4

REPORT INFORMATION
  Report Type: 
  Country: None (occurrence: None)
  Receive Date: 20111104
  Receipt Date: 20111021
  Transmission Date: 20120403
  Serious: Yes (Other)
  Sender: FDA-Public Use
  Company Number: CA-ELI_LILLY_AND_COMPANY-CA201110005726

PATIENT
  Sex: Male

DRUGS (9)
  1. VALPROATE SODIUM [Concomitant]
  2. CELEXA [Concomitant]
  3. PROZAC [Concomitant]
  4. RISPERDAL [Concomitant]
  5. ZYPREXA [Suspect]
     Indication: OBSESSIVE-COMPULSIVE DISORDER
     Dosage: 2.5 MG, QD
     Dates: start: 20061123
  6. LAMOTRIGINE [Concomitant]
  7. ZYPREXA [Suspect]
     Dosage: 15 MG, QD
     Dates: end: 20070720
  8. LORAZEPAM [Concomitant]
  9. ZOLOFT [Concomitant]

REACTIONS (8)
  - LIVER DISORDER [None]
  - BLOOD CHOLESTEROL INCREASED [None]
  - PANCREATITIS [None]
  - OFF LABEL USE [None]
  - ALANINE AMINOTRANSFERASE INCREASED [None]
  - HYPERGLYCAEMIA [None]
  - BLOOD TRIGLYCERIDES INCREASED [None]
  - WEIGHT INCREASED [None]
